FAERS Safety Report 7462084-6 (Version None)
Quarter: 2011Q2

REPORT INFORMATION
  Report Type: 
  Country: None (occurrence: None)
  Receive Date: 20110506
  Receipt Date: 20090125
  Transmission Date: 20111010
  Serious: Yes (Death, Other)
  Sender: FDA-Public Use
  Company Number: US-BAYER-200911448NA

PATIENT
  Age: 77 Year
  Sex: Female
  Weight: 77.098 kg

DRUGS (21)
  1. ASPIRIN [Concomitant]
     Dosage: 81 MG, UNK
     Route: 048
  2. SOL MEDROL [Concomitant]
     Dosage: 500 MG, UNK
     Route: 042
     Dates: start: 20020828, end: 20020828
  3. ISORDIL [Concomitant]
     Dosage: 60 MG, QD
     Route: 048
  4. LEVOPHED [Concomitant]
     Dosage: UNK
     Dates: start: 20020903
  5. LASIX [Concomitant]
     Dosage: UNK
     Route: 048
  6. LOPRESSOR [Concomitant]
     Dosage: 25 MG, QD
     Route: 048
  7. PLAVIX [Concomitant]
     Dosage: 75 MG, QD
     Route: 048
     Dates: start: 20020828
  8. AMIODARONE [Concomitant]
     Dosage: 300 MG, UNK
     Dates: start: 20020828, end: 20020828
  9. DOPAMINE HCL [Concomitant]
     Dosage: UNK
     Dates: start: 20020828, end: 20020828
  10. RED BLOOD CELLS [Concomitant]
     Dosage: 2 UNITS
     Dates: start: 20020903
  11. ZOCOR [Concomitant]
     Dosage: 80 MG, UNK
     Route: 048
  12. EPINEPHRINE [Concomitant]
     Dosage: 5-10 MG, UNK
     Dates: start: 20020828, end: 20020828
  13. TRASYLOL [Suspect]
     Indication: CORONARY ARTERY BYPASS
     Dosage: UNK
     Route: 042
  14. COZAAR [Concomitant]
     Dosage: 50 MG, QD
     Route: 048
  15. NITROGLYCERIN [Concomitant]
     Dosage: UNK
     Dates: start: 20020828, end: 20020828
  16. PLATELETS [Concomitant]
     Dosage: 12 UNITS
     Dates: start: 20020901
  17. ACTONEL [Concomitant]
     Dosage: 5 MG, QD
     Route: 048
  18. VERSED [Concomitant]
     Dosage: 2 MG, UNK
     Route: 042
  19. PROTAMINE SULFATE [Concomitant]
     Dosage: 40 UNK, UNK
     Dates: start: 20020828, end: 20020828
  20. LIDOCAINE [Concomitant]
     Dosage: 100 MG, UNK
     Route: 042
     Dates: start: 20020828, end: 20020828
  21. AMICAR [Concomitant]
     Dosage: 1 MG, UNK
     Dates: start: 20020828, end: 20020828

REACTIONS (13)
  - RENAL IMPAIRMENT [None]
  - FEAR [None]
  - RENAL FAILURE [None]
  - EMOTIONAL DISTRESS [None]
  - UNEVALUABLE EVENT [None]
  - ANHEDONIA [None]
  - MULTI-ORGAN FAILURE [None]
  - ANXIETY [None]
  - PAIN [None]
  - STRESS [None]
  - RENAL INJURY [None]
  - DEATH [None]
  - INJURY [None]
